FAERS Safety Report 18694131 (Version 1)
Quarter: 2020Q4

REPORT INFORMATION
  Report Type: Spontaneous
  Country: US (occurrence: US)
  Receive Date: 20201231
  Receipt Date: 20201231
  Transmission Date: 20210114
  Serious: No
  Sender: FDA-Public Use
  Company Number: None

PATIENT
  Age: 82 Year
  Sex: Male
  Weight: 93 kg

DRUGS (1)
  1. BAMLANIVIMAB. [Suspect]
     Active Substance: BAMLANIVIMAB
     Indication: COVID-19
     Dosage: ?          OTHER FREQUENCY:ONCE;?
     Route: 042
     Dates: start: 20201231, end: 20201231

REACTIONS (6)
  - Nausea [None]
  - Diarrhoea [None]
  - Malaise [None]
  - Blood pressure increased [None]
  - Infusion related reaction [None]
  - Syncope [None]

NARRATIVE: CASE EVENT DATE: 20201231
